FAERS Safety Report 19974516 (Version 2)
Quarter: 2022Q1

REPORT INFORMATION
  Report Type: Spontaneous
  Country: CN (occurrence: CN)
  Receive Date: 20211020
  Receipt Date: 20220112
  Transmission Date: 20220423
  Serious: Yes (Other)
  Sender: FDA-Public Use
  Company Number: CN-PFIZER INC-202101342126

PATIENT
  Age: 30 Year
  Sex: Female
  Weight: 65 kg

DRUGS (4)
  1. CARBOPROST TROMETHAMINE [Suspect]
     Active Substance: CARBOPROST TROMETHAMINE
     Indication: Uterine hypotonus
     Dosage: 250 UG, 2X/DAY
     Route: 019
     Dates: start: 20210908, end: 20210908
  2. CARBETOCIN [Suspect]
     Active Substance: CARBETOCIN
     Indication: Uterine hypotonus
     Dosage: 100 UG, 1X/DAY
     Route: 042
     Dates: start: 20210908, end: 20210908
  3. OXYTOCIN [Suspect]
     Active Substance: OXYTOCIN
     Indication: Uterine hypotonus
     Dosage: 10 UNITS, 1X/DAY
     Route: 030
     Dates: start: 20210908, end: 20210908
  4. OXYTOCIN [Suspect]
     Active Substance: OXYTOCIN
     Dosage: 30 UNITS, 1X/DAY
     Route: 041
     Dates: start: 20210908, end: 20210908

REACTIONS (2)
  - Urticaria [Recovering/Resolving]
  - Off label use [Unknown]

NARRATIVE: CASE EVENT DATE: 20210908
